FAERS Safety Report 25304600 (Version 1)
Quarter: 2025Q2

REPORT INFORMATION
  Report Type: Spontaneous
  Country: US (occurrence: None)
  Receive Date: 20250512
  Receipt Date: 20250512
  Transmission Date: 20250717
  Serious: Yes (Life-Threatening)
  Sender: FDA-CTU
  Company Number: None

PATIENT
  Age: 30 Year
  Sex: Female
  Weight: 81.45 kg

DRUGS (10)
  1. NURTEC ODT [Suspect]
     Active Substance: RIMEGEPANT SULFATE
     Indication: Migraine
     Route: 048
     Dates: start: 20250508, end: 20250512
  2. albuterol 90 mcg/actuation HFA inhaler [Concomitant]
  3. Amitriptyline 100mg tablet [Concomitant]
  4. DIAZEPAM [Concomitant]
     Active Substance: DIAZEPAM
  5. Gabapentin 400mg capsule [Concomitant]
  6. Meclizine 25mg tablet [Concomitant]
  7. METHYLPHENIDATE [Concomitant]
     Active Substance: METHYLPHENIDATE
  8. MONTELUKAST SODIUM [Concomitant]
     Active Substance: MONTELUKAST SODIUM
  9. Prazosin 2mg tablet [Concomitant]
  10. Effexor 150mg 24 hr capsule [Concomitant]

REACTIONS (6)
  - Tinnitus [None]
  - Dizziness [None]
  - Disorientation [None]
  - Dysstasia [None]
  - Blood pressure increased [None]
  - Heart rate increased [None]

NARRATIVE: CASE EVENT DATE: 20250508
